FAERS Safety Report 11537895 (Version 2)
Quarter: 2015Q4

REPORT INFORMATION
  Report Type: Spontaneous
  Country: US (occurrence: US)
  Receive Date: 20150922
  Receipt Date: 20151019
  Transmission Date: 20160304
  Serious: Yes (Hospitalization)
  Sender: FDA-Public Use
  Company Number: US-BAUSCH-BL-2015-021444

PATIENT
  Age: 85 Year
  Sex: Male

DRUGS (1)
  1. PROVENGE [Suspect]
     Active Substance: SIPULEUCEL-T
     Indication: PRODUCT USED FOR UNKNOWN INDICATION
     Dosage: 250 ML, SINGLE DOSE
     Route: 042
     Dates: start: 20150827, end: 20150827

REACTIONS (1)
  - Hospitalisation [Unknown]

NARRATIVE: CASE EVENT DATE: 201509
